FAERS Safety Report 18214815 (Version 1)
Quarter: 2020Q3

REPORT INFORMATION
  Report Type: Spontaneous
  Country: FR (occurrence: FR)
  Receive Date: 20200831
  Receipt Date: 20200831
  Transmission Date: 20201103
  Serious: Yes (Other)
  Sender: FDA-Public Use
  Company Number: FR-MYLANLABS-2020M1074484

PATIENT
  Age: 16 Year
  Sex: Male

DRUGS (1)
  1. CETIRIZINE MYLAN 10 MG, COMPRIM? PELLICUL? S?CABLE [Suspect]
     Active Substance: CETIRIZINE HYDROCHLORIDE
     Indication: HYPERSENSITIVITY
     Dosage: SI BESOIN
     Route: 048
     Dates: start: 2017, end: 2020

REACTIONS (2)
  - Burn oral cavity [Recovered/Resolved]
  - Oral pruritus [Recovered/Resolved]

NARRATIVE: CASE EVENT DATE: 2020
